FAERS Safety Report 9886635 (Version 1)
Quarter: 2014Q1

REPORT INFORMATION
  Report Type: Spontaneous
  Country: US (occurrence: US)
  Receive Date: 20140210
  Receipt Date: 20140210
  Transmission Date: 20141002
  Serious: Yes (Other)
  Sender: FDA-Public Use
  Company Number: CHPA2014US002340

PATIENT
  Age: 11 Year
  Sex: Female

DRUGS (1)
  1. TRIAMINIC COLD + COUGH [Suspect]
     Dosage: UNK, UNK
     Route: 048

REACTIONS (2)
  - Cerebrovascular accident [Unknown]
  - Malaise [Unknown]
